FAERS Safety Report 6040839-2 (Version None)
Quarter: 2009Q1

REPORT INFORMATION
  Report Type: 
  Country: None (occurrence: None)
  Receive Date: 20090116
  Receipt Date: 20080610
  Transmission Date: 20090719
  Serious: No
  Sender: FDA-Public Use
  Company Number: US-BRISTOL-MYERS SQUIBB COMPANY-14222590

PATIENT
  Age: 66 Year
  Sex: Female
  Weight: 50 kg

DRUGS (11)
  1. ABILIFY [Suspect]
     Indication: BIPOLAR DISORDER
     Dates: start: 20080101
  2. ABILIFY [Suspect]
     Indication: DEPRESSION
     Dates: start: 20080101
  3. SIMVASTATIN [Concomitant]
  4. OMEPRAZOLE [Concomitant]
  5. DEPLIN [Concomitant]
  6. VITAMIN E [Concomitant]
  7. ASCORBIC ACID [Concomitant]
  8. VITAMIN D [Concomitant]
  9. VITAMIN B [Concomitant]
  10. CALCIUM [Concomitant]
  11. ZINC [Concomitant]

REACTIONS (3)
  - FEELING JITTERY [None]
  - GAIT DISTURBANCE [None]
  - SKIN DISCOMFORT [None]
